FAERS Safety Report 18296132 (Version 1)
Quarter: 2020Q3

REPORT INFORMATION
  Report Type: Spontaneous
  Country: IT (occurrence: IT)
  Receive Date: 20200922
  Receipt Date: 20200922
  Transmission Date: 20201103
  Serious: Yes (Death, Other)
  Sender: FDA-Public Use
  Company Number: IT-BRISTOL-MYERS SQUIBB COMPANY-BMS-2020-074108

PATIENT
  Age: 81 Year
  Sex: Female

DRUGS (1)
  1. COUMADIN [Suspect]
     Active Substance: WARFARIN SODIUM
     Indication: ATRIAL FIBRILLATION
     Dosage: 1 DOSAGE FORM, PER DAY
     Route: 048

REACTIONS (5)
  - Gravitational oedema [Fatal]
  - Respiratory arrest [Fatal]
  - International normalised ratio increased [Fatal]
  - Overdose [Fatal]
  - Swelling [Fatal]

NARRATIVE: CASE EVENT DATE: 20180721
